FAERS Safety Report 24450131 (Version 1)
Quarter: 2024Q4

REPORT INFORMATION
  Report Type: Other
  Country: IT (occurrence: IT)
  Receive Date: 20241017
  Receipt Date: 20241017
  Transmission Date: 20250115
  Serious: Yes (Other)
  Sender: STERISCIENCE PTE
  Company Number: IT-CELLTRION HEALTHCARE HUNGARY KFT-2021IT008027

PATIENT
  Age: 69 Year
  Sex: Female

DRUGS (14)
  1. VANCOMYCIN [Suspect]
     Active Substance: VANCOMYCIN
     Indication: Immunochemotherapy
     Dosage: UNK
     Route: 065
  2. VANCOMYCIN [Suspect]
     Active Substance: VANCOMYCIN
     Indication: Antibiotic therapy
     Dosage: UNK
     Route: 065
  3. VANCOMYCIN [Suspect]
     Active Substance: VANCOMYCIN
     Indication: Staphylococcal bacteraemia
  4. VANCOMYCIN [Suspect]
     Active Substance: VANCOMYCIN
     Indication: Staphylococcal infection
  5. MEROPENEM [Suspect]
     Active Substance: MEROPENEM
     Indication: Antibiotic therapy
     Dosage: UNK
     Route: 065
  6. MEROPENEM [Suspect]
     Active Substance: MEROPENEM
     Indication: Immunochemotherapy
  7. MEROPENEM [Suspect]
     Active Substance: MEROPENEM
     Indication: Staphylococcal bacteraemia
  8. RITUXIMAB [Suspect]
     Active Substance: RITUXIMAB
     Indication: Antibiotic therapy
     Dosage: UNK
     Route: 065
  9. RITUXIMAB [Suspect]
     Active Substance: RITUXIMAB
     Indication: Immunochemotherapy
  10. RITUXIMAB [Suspect]
     Active Substance: RITUXIMAB
     Indication: Staphylococcal bacteraemia
  11. RITUXIMAB [Suspect]
     Active Substance: RITUXIMAB
     Indication: Immunosuppressant drug therapy
  12. DAPTOMYCIN [Suspect]
     Active Substance: DAPTOMYCIN
     Indication: Immunochemotherapy
     Dosage: UNK
     Route: 065
  13. DAPTOMYCIN [Suspect]
     Active Substance: DAPTOMYCIN
     Indication: Staphylococcal bacteraemia
  14. DAPTOMYCIN [Suspect]
     Active Substance: DAPTOMYCIN
     Indication: Antibiotic therapy

REACTIONS (4)
  - Staphylococcal bacteraemia [Unknown]
  - Bacteraemia [Unknown]
  - Therapeutic product effect incomplete [Unknown]
  - Off label use [Unknown]
